FAERS Safety Report 6013566-5 (Version None)
Quarter: 2008Q4

REPORT INFORMATION
  Report Type: 
  Country: None (occurrence: None)
  Receive Date: 20081218
  Receipt Date: 20081218
  Transmission Date: 20090506
  Serious: Yes (Hospitalization)
  Sender: FDA-Public Use
  Company Number: None

PATIENT
  Sex: Female
  Weight: 6.84 kg

DRUGS (6)
  1. CYTARABINE [Suspect]
     Dosage: 4215 MG
     Dates: end: 20081204
  2. CYCLOPHOSPHAMIDE [Suspect]
     Dosage: 540 MG
     Dates: end: 20081117
  3. ETOPOSIDE [Suspect]
     Dosage: 180 MG
     Dates: end: 20081117
  4. HYDROCORTISONE [Suspect]
     Dosage: 7.5 MG
     Dates: end: 20081015
  5. METHOTREXATE [Suspect]
     Dosage: 2439.5 MG
     Dates: end: 20081105
  6. PEG-L-ASPARAGINASE (K-H) [Suspect]
     Dosage: 900 IU
     Dates: end: 20081205

REACTIONS (10)
  - BLOOD CULTURE POSITIVE [None]
  - ELECTROENCEPHALOGRAM ABNORMAL [None]
  - KLEBSIELLA INFECTION [None]
  - NUCLEAR MAGNETIC RESONANCE IMAGING BRAIN ABNORMAL [None]
  - PLATELET COUNT DECREASED [None]
  - PYREXIA [None]
  - STAPHYLOCOCCAL INFECTION [None]
  - STATUS EPILEPTICUS [None]
  - UPPER RESPIRATORY TRACT INFECTION [None]
  - WHITE BLOOD CELL COUNT DECREASED [None]
